FAERS Safety Report 17653057 (Version 1)
Quarter: 2020Q2

REPORT INFORMATION
  Report Type: Spontaneous
  Country: TW (occurrence: TW)
  Receive Date: 20200409
  Receipt Date: 20200409
  Transmission Date: 20200713
  Serious: Yes (Other)
  Sender: FDA-Public Use
  Company Number: NVSC2020TW096088

PATIENT
  Sex: Female

DRUGS (6)
  1. AVASTIN [Concomitant]
     Active Substance: BEVACIZUMAB
     Indication: OVARIAN CLEAR CELL CARCINOMA
     Dosage: UNK
     Route: 065
     Dates: start: 20180131
  2. CARBOPLATIN. [Suspect]
     Active Substance: CARBOPLATIN
     Indication: OVARIAN CLEAR CELL CARCINOMA
     Dosage: UNK
     Route: 065
     Dates: start: 201703, end: 20180810
  3. PACLITAXEL. [Suspect]
     Active Substance: PACLITAXEL
     Indication: OVARIAN CLEAR CELL CARCINOMA
     Dosage: UNK
     Route: 065
     Dates: start: 201703
  4. TOPOTECAN [Suspect]
     Active Substance: TOPOTECAN HYDROCHLORIDE
     Indication: OVARIAN CLEAR CELL CARCINOMA
     Dosage: UNK, BIW
     Route: 065
     Dates: start: 20190423
  5. ENDOXAN [Concomitant]
     Active Substance: CYCLOPHOSPHAMIDE
     Indication: OVARIAN CLEAR CELL CARCINOMA
     Dosage: 1 DF, BID
     Route: 065
     Dates: start: 202001
  6. LIPODOX [Concomitant]
     Active Substance: DOXORUBICIN HYDROCHLORIDE
     Indication: OVARIAN CLEAR CELL CARCINOMA
     Dosage: UNK
     Route: 065
     Dates: start: 20180628, end: 20180810

REACTIONS (4)
  - Metastases to lung [Unknown]
  - Metastases to retroperitoneum [Unknown]
  - Recurrent cancer [Unknown]
  - Metastases to bone [Unknown]

NARRATIVE: CASE EVENT DATE: 20181203
